FAERS Safety Report 17614558 (Version 1)
Quarter: 2020Q1

REPORT INFORMATION
  Report Type: Spontaneous
  Country: US (occurrence: US)
  Receive Date: 20200331
  Receipt Date: 20200331
  Transmission Date: 20200409
  Serious: Yes (Other)
  Sender: FDA-Public Use
  Company Number: None

PATIENT
  Age: 63 Year
  Sex: Male

DRUGS (21)
  1. ACTEMRA [Suspect]
     Active Substance: TOCILIZUMAB
     Indication: RHEUMATOID ARTHRITIS
     Route: 058
     Dates: start: 20190925
  2. BENZONATATE. [Concomitant]
     Active Substance: BENZONATATE
  3. ELIQUIS [Concomitant]
     Active Substance: APIXABAN
  4. LEVAQUIN [Concomitant]
     Active Substance: LEVOFLOXACIN
  5. METHOTREXATE. [Concomitant]
     Active Substance: METHOTREXATE
  6. ENBREL [Concomitant]
     Active Substance: ETANERCEPT
  7. LEFLUNOMIDE. [Concomitant]
     Active Substance: LEFLUNOMIDE
  8. PROPO-N/APAP [Concomitant]
  9. AMOX/K CLAV [Concomitant]
     Active Substance: AMOXICILLIN\CLAVULANATE POTASSIUM
  10. HYDROXYCHLOR [Concomitant]
     Active Substance: HYDROXYCHLOROQUINE
  11. IBUPROFEN. [Concomitant]
     Active Substance: IBUPROFEN
  12. TRAMADOL. [Concomitant]
     Active Substance: TRAMADOL
  13. LISINOPRIL. [Concomitant]
     Active Substance: LISINOPRIL
  14. METHYLPRED [Concomitant]
     Active Substance: METHYLPREDNISOLONE
  15. SIMPONI [Concomitant]
     Active Substance: GOLIMUMAB
  16. C-PHEN DM [Concomitant]
  17. FOLIC ACID. [Concomitant]
     Active Substance: FOLIC ACID
  18. METOPROL SUC [Concomitant]
  19. TUSSIONEX PENNKINETIC [Concomitant]
     Active Substance: CHLORPHENIRAMINE\HYDROCODONE
  20. CLARITHROMYC [Concomitant]
  21. PREDNISONE. [Concomitant]
     Active Substance: PREDNISONE

REACTIONS (2)
  - Surgery [None]
  - Therapy cessation [None]
